FAERS Safety Report 23298589 (Version 1)
Quarter: 2023Q4

REPORT INFORMATION
  Report Type: Spontaneous
  Country: GB (occurrence: GB)
  Receive Date: 20231214
  Receipt Date: 20231214
  Transmission Date: 20240109
  Serious: Yes (Other)
  Sender: FDA-Public Use
  Company Number: None

PATIENT
  Age: 76 Year
  Sex: Male
  Weight: 61 kg

DRUGS (7)
  1. FINASTERIDE [Interacting]
     Active Substance: FINASTERIDE
     Indication: Prostatomegaly
     Dosage: 5 MILLIGRAM, OD (TABLET)
     Route: 065
  2. SPIKEVAX (ANDUSOMERAN) [Interacting]
     Active Substance: ANDUSOMERAN
     Indication: COVID-19 immunisation
     Dosage: UNK
     Route: 065
  3. SPIKEVAX (ANDUSOMERAN) [Interacting]
     Active Substance: ANDUSOMERAN
     Indication: COVID-19 immunisation
  4. NICORANDIL [Concomitant]
     Active Substance: NICORANDIL
     Indication: Coronary artery disease
     Dosage: 20 MILLIGRAM
     Route: 065
     Dates: start: 20021227
  5. ISOSORBIDE MONONITRATE [Concomitant]
     Active Substance: ISOSORBIDE MONONITRATE
     Indication: Coronary artery disease
     Dosage: 60 MILLIGRAM
     Route: 065
  6. CLOPIDOGREL [Concomitant]
     Active Substance: CLOPIDOGREL BISULFATE
     Indication: Coronary artery disease
     Dosage: 75 MILLIGRAM
     Route: 065
  7. BISOPROLOL [Concomitant]
     Active Substance: BISOPROLOL\BISOPROLOL FUMARATE
     Indication: Coronary artery disease
     Dosage: 10 MILLIGRAM
     Route: 065

REACTIONS (3)
  - Urinary retention [Recovering/Resolving]
  - Bladder pain [Recovering/Resolving]
  - Drug interaction [Unknown]
